FAERS Safety Report 8979300 (Version 2)
Quarter: 2014Q2

REPORT INFORMATION
  Report Type: Report from Study
  Country: ES (occurrence: ES)
  Receive Date: 20121221
  Receipt Date: 20131018
  Transmission Date: 20141212
  Serious: Yes (Hospitalization)
  Sender: FDA-Public Use
  Company Number: ES-PFIZER INC-HQWYE699307FEB06

PATIENT
  Age: 68 Year
  Sex: Male

DRUGS (95)
  1. RAPAMUNE [Suspect]
     Indication: PROPHYLAXIS AGAINST TRANSPLANT REJECTION
     Dosage: 9 MG, 1X/DAY
     Route: 048
     Dates: start: 20031111, end: 20031111
  2. RAPAMUNE [Suspect]
     Dosage: 2 MG, 1X/DAY
     Route: 048
     Dates: start: 20031112, end: 20040121
  3. RAPAMUNE [Suspect]
     Dosage: 2 MG, 1X/DAY
     Route: 048
     Dates: start: 20040122, end: 20040123
  4. RAPAMUNE [Suspect]
     Dosage: 3 MG, 1X/DAY
     Route: 048
     Dates: start: 20040126, end: 20040127
  5. METHYLPREDNISOLONE SODIUM SUCCINATE [Suspect]
     Indication: PROPHYLAXIS AGAINST TRANSPLANT REJECTION
     Dosage: 250 MG, 2X/DAY
     Route: 042
     Dates: start: 20031111, end: 20031113
  6. METHYLPREDNISOLONE SODIUM SUCCINATE [Suspect]
     Dosage: 500 MG, 1X/DAY
     Route: 042
     Dates: start: 20040117, end: 20040120
  7. METHYLPREDNISOLONE SODIUM SUCCINATE [Suspect]
     Dosage: 16 MG, 2X/DAY
     Route: 042
     Dates: start: 20040124, end: 20040128
  8. METHYLPREDNISOLONE SODIUM SUCCINATE [Suspect]
     Dosage: 40 MG, 2X/DAY
     Route: 042
     Dates: start: 20040316, end: 20040319
  9. METHYLPREDNISOLONE SODIUM SUCCINATE [Suspect]
     Dosage: 20 MG, 1X/DAY
     Route: 042
     Dates: start: 20040707, end: 20040709
  10. METHYLPREDNISOLONE SODIUM SUCCINATE [Suspect]
     Dosage: 20 MG, 1X/DAY
     Route: 042
     Dates: start: 20041112
  11. ZENAPAX [Suspect]
     Indication: PROPHYLAXIS AGAINST TRANSPLANT REJECTION
     Dosage: 165 MG, SINGLE
     Route: 042
     Dates: start: 20031111, end: 20031111
  12. ZENAPAX [Suspect]
     Dosage: 75 MG, ONCE EVERY TWO WEEKS
     Route: 042
     Dates: start: 20031125
  13. ZENAPAX [Suspect]
     Dosage: 80 MG, UNK
     Route: 042
     Dates: start: 20031222
  14. ZENAPAX [Suspect]
     Dosage: 75 MG, UNK
     Route: 042
     Dates: start: 20040109
  15. MYCOPHENOLATE MOFETIL [Suspect]
     Indication: PROPHYLAXIS AGAINST TRANSPLANT REJECTION
     Dosage: 1000 MG, 2X/DAY
     Route: 048
     Dates: start: 20031111
  16. MYCOPHENOLATE MOFETIL [Suspect]
     Dosage: 750 MG, 2X/DAY
     Route: 048
     Dates: start: 20040109, end: 20040109
  17. MYCOPHENOLATE MOFETIL [Suspect]
     Dosage: 500 MG, 2X/DAY
     Route: 048
     Dates: start: 20040110
  18. MYCOPHENOLATE MOFETIL [Suspect]
     Dosage: 250 MG, 2X/DAY
     Route: 048
     Dates: start: 20040114
  19. MYCOPHENOLATE MOFETIL [Suspect]
     Dosage: 500 MG, 2X/DAY
     Route: 048
     Dates: start: 20040116
  20. MYCOPHENOLATE MOFETIL [Suspect]
     Dosage: 500 MG, 1X/DAY
     Route: 048
     Dates: start: 20040122, end: 20040123
  21. MYCOPHENOLATE MOFETIL [Suspect]
     Dosage: 250 MG, 1X/DAY
     Route: 048
     Dates: start: 20040209, end: 20040209
  22. MYCOPHENOLATE MOFETIL [Suspect]
     Dosage: 250 MG, 2X/DAY
     Route: 048
     Dates: start: 20040210, end: 20040210
  23. MYCOPHENOLATE MOFETIL [Suspect]
     Dosage: 250 MG, 3X/DAY
     Route: 048
     Dates: start: 20040211
  24. MYCOPHENOLATE MOFETIL [Suspect]
     Dosage: 500 MG, 2X/DAY
     Route: 048
     Dates: start: 20040213
  25. MYCOPHENOLATE MOFETIL [Suspect]
     Dosage: 750 MG, 2X/DAY
     Route: 048
     Dates: start: 20040219
  26. MYCOPHENOLATE MOFETIL [Suspect]
     Dosage: 500 MG, 2X/DAY
     Route: 048
     Dates: start: 20040310, end: 20040315
  27. MYCOPHENOLATE MOFETIL [Suspect]
     Dosage: 250 MG, 2X/DAY
     Route: 048
     Dates: start: 20040331
  28. MYCOPHENOLATE MOFETIL [Suspect]
     Dosage: 250 MG, 3X/DAY
     Route: 048
     Dates: start: 20040416
  29. MYCOPHENOLATE MOFETIL [Suspect]
     Dosage: 500 MG, 3X/DAY
     Route: 048
     Dates: start: 20040608
  30. MYCOPHENOLATE MOFETIL [Suspect]
     Dosage: 250 MG, 3X/DAY
     Route: 048
     Dates: start: 20040628
  31. MYCOPHENOLATE MOFETIL [Suspect]
     Dosage: 250 MG, 2X/DAY
     Route: 048
     Dates: start: 20040706
  32. MYCOPHENOLATE MOFETIL [Suspect]
     Dosage: 250 MG, 3X/DAY
     Route: 048
     Dates: start: 20040805
  33. MYCOPHENOLATE MOFETIL [Suspect]
     Dosage: 500 MG, 2X/DAY
     Route: 046
     Dates: start: 20040906
  34. MYCOPHENOLATE MOFETIL [Suspect]
     Dosage: 500 MG, 1X/DAY
     Route: 048
     Dates: start: 20050713
  35. MYCOPHENOLATE MOFETIL [Suspect]
     Dosage: 750 MG, 1X/DAY
     Route: 048
     Dates: start: 20050726
  36. VALGANCICLOVIR [Suspect]
     Dosage: 900 MG, 1X/DAY
     Route: 048
     Dates: start: 20040113, end: 20040117
  37. VALGANCICLOVIR [Suspect]
     Dosage: 450 MG, 1X/DAY
     Route: 048
     Dates: start: 20040217
  38. VALGANCICLOVIR [Suspect]
     Dosage: 450 MG, ALTERNATE DAY
     Route: 048
     Dates: start: 20040307, end: 20040315
  39. VALGANCICLOVIR [Suspect]
     Dosage: UNK
  40. PREDNISONE [Suspect]
     Indication: PROPHYLAXIS AGAINST TRANSPLANT REJECTION
     Dosage: 15 MG, 1X/DAY
     Route: 048
     Dates: start: 20031113, end: 20040124
  41. PREDNISONE [Suspect]
     Dosage: 15 MG, 1X/DAY
     Route: 048
     Dates: start: 20040128, end: 20040317
  42. PREDNISONE [Suspect]
     Dosage: 10 MG, 1X/DAY
     Route: 048
     Dates: start: 20040319, end: 20040707
  43. PREDNISONE [Suspect]
     Dosage: 5 MG, 1X/DAY
     Route: 048
     Dates: start: 20040709
  44. TACROLIMUS [Suspect]
     Indication: PROPHYLAXIS AGAINST TRANSPLANT REJECTION
     Dosage: 0.5 MG, 2X/DAY
     Route: 048
     Dates: start: 20040212
  45. TACROLIMUS [Suspect]
     Dosage: 1 MG, 2X/DAY
     Route: 048
     Dates: start: 20040706
  46. TACROLIMUS [Suspect]
     Dosage: 1.5 MG, 1X/DAY
     Route: 048
     Dates: start: 20060221
  47. TACROLIMUS [Suspect]
     Dosage: 1 MG, 1X/DAY
     Route: 048
     Dates: start: 20061218
  48. AMLODIPINE BESILATE [Concomitant]
     Dosage: UNK
     Route: 065
     Dates: end: 20040119
  49. AMLODIPINE BESILATE [Concomitant]
     Dosage: 2.5 MG, 1X/DAY
     Route: 048
     Dates: start: 20040212, end: 20040611
  50. AMLODIPINE BESILATE [Concomitant]
     Dosage: 2.5 MG, 2X/DAY
     Route: 048
     Dates: start: 20040628, end: 20040706
  51. AMLODIPINE BESILATE [Concomitant]
     Dosage: 5 MG, 2X/DAY
     Route: 048
     Dates: start: 20040906
  52. AMOXICILLIN W/CLAVULANATE POTASSIUM [Concomitant]
     Dosage: 1 G, 1X/DAY
     Route: 042
     Dates: start: 20031111
  53. AMOXICILLIN W/CLAVULANATE POTASSIUM [Concomitant]
     Dosage: 500 MG, 3X/DAY
     Route: 048
     Dates: start: 20040108, end: 20040116
  54. AMOXICILLIN W/CLAVULANATE POTASSIUM [Concomitant]
     Dosage: 2 G, 3X/DAY
     Route: 042
     Dates: start: 20040309
  55. AMOXICILLIN W/CLAVULANATE POTASSIUM [Concomitant]
     Dosage: 0.5 G, 3X/DAY
     Route: 048
     Dates: start: 20040312, end: 20040330
  56. AMOXICILLIN W/CLAVULANATE POTASSIUM [Concomitant]
     Dosage: 0.5 G, 3X/DAY
     Route: 048
     Dates: start: 20040707, end: 20040715
  57. CALCITRIOL [Concomitant]
     Dosage: UNK
     Route: 048
     Dates: start: 20031118
  58. CARVEDILOL [Concomitant]
     Dosage: 6.25 MG, 1X/DAY
     Route: 048
     Dates: start: 20031121, end: 20040119
  59. CEFTRIAXONE [Concomitant]
     Dosage: 2 G, 1X/DAY
     Route: 042
     Dates: start: 20040116, end: 20040119
  60. CEFTRIAXONE [Concomitant]
     Dosage: 1 G, 2X/DAY
     Route: 042
     Dates: start: 20040122, end: 20040128
  61. CEFTRIAXONE [Concomitant]
     Dosage: 2 G, 1X/DAY
     Route: 042
     Dates: start: 20040307, end: 20040309
  62. CEFTRIAXONE [Concomitant]
     Dosage: 2 G, 1X/DAY
     Route: 042
     Dates: start: 20040716, end: 20040728
  63. CEFTRIAXONE [Concomitant]
     Dosage: UNK
  64. CIPROFLOXACIN [Concomitant]
     Dosage: 250 MG, 2X/DAY
     Route: 048
     Dates: start: 20040122, end: 20040205
  65. CIPROFLOXACIN [Concomitant]
     Dosage: 250 MG, 2X/DAY
     Route: 048
     Dates: start: 20040224, end: 20040229
  66. CIPROFLOXACIN [Concomitant]
     Dosage: 250 MG, 1X/DAY
     Route: 048
     Dates: start: 20040312, end: 20040611
  67. CIPROFLOXACIN [Concomitant]
     Dosage: 200 MG, 2X/DAY
     Route: 042
     Dates: start: 20040307
  68. DIACEPAN ^PRODES^ [Concomitant]
     Dosage: 10 MG, 1X/DAY
     Route: 048
     Dates: start: 20040307, end: 20040312
  69. DOXAZOSIN MESILATE [Concomitant]
     Dosage: UNK
     Route: 065
     Dates: start: 20040108, end: 20040707
  70. ERYTHROPOIETIN [Concomitant]
     Dosage: UNK
     Route: 058
     Dates: end: 20031122
  71. ERYTHROPOIETIN [Concomitant]
     Dosage: 5000 IU, EVERY 3 WEEKS
     Route: 058
     Dates: start: 20040109, end: 20040115
  72. ERYTHROPOIETIN [Concomitant]
     Dosage: 5000 IU, 1X/DAY
     Route: 058
     Dates: start: 20040121
  73. ERYTHROPOIETIN [Concomitant]
     Dosage: 5000 IU, EVERY 3 WEEKS
     Route: 058
     Dates: start: 20040212
  74. ERYTHROPOIETIN [Concomitant]
     Dosage: 1000 IU, WEEKLY
     Route: 058
     Dates: start: 20040305
  75. ERYTHROPOIETIN [Concomitant]
     Dosage: 3000 IU, 1X/DAY
     Route: 058
     Dates: start: 20040309
  76. ERYTHROPOIETIN [Concomitant]
     Dosage: 5000 IU, ALTERNATE DAY
     Route: 058
     Dates: start: 20040315
  77. ERYTHROPOIETIN [Concomitant]
     Dosage: 10000 IU, 1X/DAY
     Route: 058
     Dates: start: 20040323
  78. ERYTHROPOIETIN [Concomitant]
     Dosage: 5000 IU, WEEKLY
     Route: 058
     Dates: start: 20040331, end: 20040407
  79. ERYTHROPOIETIN [Concomitant]
     Dosage: 4000 IU, 1X/DAY
     Route: 058
     Dates: start: 20041113
  80. SULFATO FERROSO [Concomitant]
     Dosage: 1050 MG, 1X/DAY
     Route: 048
     Dates: start: 20031121, end: 20040115
  81. FILGRASTIM [Concomitant]
     Dosage: 48 MU, 1X/DAY
     Route: 058
     Dates: start: 20040201, end: 20040203
  82. FILGRASTIM [Concomitant]
     Dosage: 48 MU, 1X/DAY
     Route: 058
     Dates: start: 20040204, end: 20040205
  83. FILGRASTIM [Concomitant]
     Dosage: 34 MU, 1X/DAY
     Route: 058
     Dates: start: 20040317, end: 20040322
  84. GANCICLOVIR [Concomitant]
     Dosage: 100 MG, ALTERNATE DAY
     Route: 042
     Dates: start: 20040119, end: 20040202
  85. GANCICLOVIR [Concomitant]
     Dosage: 125 MG, 1X/DAY
     Route: 042
     Dates: start: 20040206
  86. ISONIAZID [Concomitant]
     Dosage: 300 MG, 1X/DAY
     Route: 048
     Dates: start: 20040205, end: 20040217
  87. ISONIAZID [Concomitant]
     Dosage: 300 MG, 1X/DAY
     Route: 048
     Dates: start: 20040219, end: 20040707
  88. ISONIAZID [Concomitant]
     Dosage: 300 MG, 1X/DAY
     Route: 048
     Dates: start: 20040709
  89. LEVOFLOXACIN [Concomitant]
     Dosage: 500 MG, 1X/DAY
     Route: 042
     Dates: start: 20040204, end: 20040220
  90. NIACIN [Concomitant]
     Dosage: 300 MG, UNK
     Route: 065
     Dates: start: 20040205, end: 20040217
  91. OMEPRAZOLE [Concomitant]
     Dosage: UNK
     Route: 048
     Dates: start: 20031111
  92. CO-TRIMAZOLE ^DAKOTA PHARM^ [Concomitant]
     Dosage: 480 MG, 1X/DAY
     Route: 048
     Dates: start: 20031113
  93. BACTRIM [Concomitant]
     Dosage: 480 MG, 1X/DAY
     Route: 048
     Dates: start: 20031113
  94. BACTRIM [Concomitant]
     Dosage: 480 MG, 1X/DAY
     Route: 048
     Dates: start: 20040204, end: 20040511
  95. VANCOMYCIN [Concomitant]
     Dosage: 500 MG, 1X/DAY
     Route: 042
     Dates: start: 20040204, end: 20040208

REACTIONS (4)
  - Cytomegalovirus infection [Recovered/Resolved]
  - Pyelonephritis acute [Recovered/Resolved]
  - Thrombotic microangiopathy [Recovered/Resolved]
  - Bone marrow toxicity [Recovered/Resolved]
